FAERS Safety Report 14966769 (Version 1)
Quarter: 2018Q2

REPORT INFORMATION
  Report Type: Spontaneous
  Country: NZ (occurrence: NZ)
  Receive Date: 20180604
  Receipt Date: 20180604
  Transmission Date: 20180711
  Serious: No
  Sender: FDA-Public Use
  Company Number: NZ-CHEPLA-C20170544

PATIENT
  Sex: Male

DRUGS (1)
  1. XENICAL [Suspect]
     Active Substance: ORLISTAT

REACTIONS (2)
  - Product quality issue [Unknown]
  - Drug ineffective [Unknown]
